FAERS Safety Report 11688403 (Version 2)
Quarter: 2017Q1

REPORT INFORMATION
  Report Type: Spontaneous
  Country: US (occurrence: US)
  Receive Date: 20151101
  Receipt Date: 20170102
  Transmission Date: 20170428
  Serious: Yes (Death, Other)
  Sender: FDA-Public Use
  Company Number: PHHY2015US130966

PATIENT
  Age: 0 Day
  Sex: Female
  Weight: 2.86 kg

DRUGS (4)
  1. HEPATITIS B VACCINE [Suspect]
     Active Substance: HEPATITIS B VIRUS VACCINE
     Indication: PROPHYLAXIS
     Dosage: ?????
     Route: 065
     Dates: start: 20140307, end: 20140307
  2. ZOFRAN [Suspect]
     Active Substance: ONDANSETRON HYDROCHLORIDE
     Indication: NAUSEA
     Dosage: 4 MG, UNK (MATERNAL DOSE)
     Route: 064
     Dates: start: 2013, end: 20140307
  3. ZOFRAN [Suspect]
     Active Substance: ONDANSETRON HYDROCHLORIDE
     Indication: VOMITING
  4. VALTREX [Suspect]
     Active Substance: VALACYCLOVIR HYDROCHLORIDE
     Indication: PRODUCT USED FOR UNKNOWN INDICATION
     Dosage: UNK
     Route: 064
     Dates: start: 201401

REACTIONS (9)
  - Sepsis [Unknown]
  - Metabolic acidosis [Unknown]
  - Hypotension [Unknown]
  - Tachycardia [Unknown]
  - Respiratory distress [Unknown]
  - Cardiac murmur [Unknown]
  - Labelled drug-drug interaction medication error [Unknown]
  - Cardiomyopathy [Fatal]
  - Shock [Fatal]

NARRATIVE: CASE EVENT DATE: 20140307
